FAERS Safety Report 21704215 (Version 1)
Quarter: 2022Q4

REPORT INFORMATION
  Report Type: Spontaneous
  Country: IN (occurrence: IN)
  Receive Date: 20221209
  Receipt Date: 20221209
  Transmission Date: 20230112
  Serious: Yes (Death, Other)
  Sender: FDA-Public Use
  Company Number: IN-SA-SAC20221208001539

PATIENT
  Age: 9 Month
  Sex: Male

DRUGS (2)
  1. MYOZYME [Suspect]
     Active Substance: ALGLUCOSIDASE ALFA
     Route: 065
     Dates: start: 20221119
  2. METHOTREXATE [Concomitant]
     Active Substance: METHOTREXATE

REACTIONS (16)
  - Multiple organ dysfunction syndrome [Fatal]
  - Sepsis [Fatal]
  - Acute kidney injury [Fatal]
  - Septic shock [Fatal]
  - Cardiac arrest [Fatal]
  - Glycogen storage disease type II [Fatal]
  - Hypoxia [Unknown]
  - Respiratory distress [Unknown]
  - Condition aggravated [Unknown]
  - Respiratory rate increased [Unknown]
  - Left ventricular dysfunction [Unknown]
  - Ejection fraction decreased [Unknown]
  - Total lung capacity increased [Unknown]
  - Lymphocyte count abnormal [Unknown]
  - Coagulopathy [Unknown]
  - Cough [Unknown]

NARRATIVE: CASE EVENT DATE: 20221125
